FAERS Safety Report 9601750 (Version 1)
Quarter: 2013Q4

REPORT INFORMATION
  Report Type: Spontaneous
  Country: PT (occurrence: None)
  Receive Date: 20131002
  Receipt Date: 20131002
  Transmission Date: 20140711
  Serious: Yes (Other)
  Sender: FDA-Public Use
  Company Number: METH20130012

PATIENT
  Age: 34 Year
  Sex: Female

DRUGS (1)
  1. METHYPREDNISOLONE [Suspect]
     Indication: MULTIPLE SCLEROSIS
     Dosage: ORAL.

REACTIONS (1)
  - Hepatic failure [None]
